FAERS Safety Report 6896566-2 (Version None)
Quarter: 2010Q3

REPORT INFORMATION
  Report Type: 
  Country: None (occurrence: None)
  Receive Date: 20100802
  Receipt Date: 20090324
  Transmission Date: 20110219
  Serious: No
  Sender: FDA-Public Use
  Company Number: US-PFIZER INC-2009168708

PATIENT
  Sex: Female
  Weight: 84.354 kg

DRUGS (6)
  1. NEURONTIN [Suspect]
     Indication: CONVULSION
     Dosage: 800 MG, 2X/DAY
     Route: 048
  2. XANAX [Concomitant]
     Dosage: UNK
  3. WELLBUTRIN [Concomitant]
     Dosage: UNK
  4. PAXIL [Concomitant]
     Dosage: UNK
  5. AMBIEN [Concomitant]
     Dosage: UNK
  6. TRAZODONE [Concomitant]
     Dosage: UNK

REACTIONS (4)
  - DIARRHOEA [None]
  - GASTROINTESTINAL DISORDER [None]
  - GASTROOESOPHAGEAL REFLUX DISEASE [None]
  - JOINT SWELLING [None]
